FAERS Safety Report 20574495 (Version 7)
Quarter: 2022Q3

REPORT INFORMATION
  Report Type: Spontaneous
  Country: US (occurrence: US)
  Receive Date: 20220309
  Receipt Date: 20220807
  Transmission Date: 20221027
  Serious: No
  Sender: FDA-Public Use
  Company Number: US-Blueprint Medicines Corporation-SP-US-2022-000587

PATIENT
  Age: 79 Year
  Sex: Male

DRUGS (3)
  1. AYVAKIT [Suspect]
     Active Substance: AVAPRITINIB
     Indication: Systemic mastocytosis
     Route: 048
     Dates: start: 20210713
  2. AYVAKIT [Suspect]
     Active Substance: AVAPRITINIB
     Route: 048
     Dates: start: 20210722
  3. VIDAZA [Concomitant]
     Active Substance: AZACITIDINE
     Indication: Myelodysplastic syndrome
     Dosage: DAYS 1.5 EVERY 28 DAYS
     Route: 065

REACTIONS (5)
  - Malaise [Not Recovered/Not Resolved]
  - Taste disorder [Not Recovered/Not Resolved]
  - Anaemia [Not Recovered/Not Resolved]
  - White blood cell count decreased [Recovered/Resolved]
  - Tryptase increased [Recovering/Resolving]

NARRATIVE: CASE EVENT DATE: 20220613
